FAERS Safety Report 4957417-6 (Version None)
Quarter: 2006Q1

REPORT INFORMATION
  Report Type: 
  Country: None (occurrence: None)
  Receive Date: 20060327
  Receipt Date: 20060310
  Transmission Date: 20060701
  Serious: Yes (Life-Threatening)
  Sender: FDA-Public Use
  Company Number: 2006P1000171

PATIENT
  Age: 1 Year
  Sex: Male
  Weight: 7.9 kg

DRUGS (14)
  1. BUSULFAN (BUSULFAN) [Suspect]
     Indication: NEUROBLASTOMA
     Dosage: 7.9 MG; Q6H; IV
     Route: 042
     Dates: start: 20060131, end: 20060204
  2. MELPHALAN (MELPHALAN) [Suspect]
     Indication: NEUROBLASTOMA
     Dosage: 40 MG; IV
     Route: 042
     Dates: start: 20060204
  3. SALBUTAMOL [Concomitant]
  4. EPINEPHRINE [Concomitant]
  5. PULMICORT [Concomitant]
  6. GRANULOCYTE COLONY [Concomitant]
  7. STIMULATING FACTOR [Concomitant]
  8. VANCOMYCIN [Concomitant]
  9. CIPROFLOXACIN HCL [Concomitant]
  10. CEFTAZIDIME [Concomitant]
  11. METRONIDAZOLE [Concomitant]
  12. AMPHOTERICIN B [Concomitant]
  13. KETAMINE HCL [Concomitant]
  14. CLONAZEPAM [Concomitant]

REACTIONS (3)
  - HYPOXIA [None]
  - PULMONARY ALVEOLAR HAEMORRHAGE [None]
  - RESPIRATORY DISTRESS [None]
